FAERS Safety Report 21280571 (Version 1)
Quarter: 2022Q3

REPORT INFORMATION
  Report Type: Spontaneous
  Country: NO (occurrence: NO)
  Receive Date: 20220901
  Receipt Date: 20220901
  Transmission Date: 20221026
  Serious: Yes (Other)
  Sender: FDA-Public Use
  Company Number: None

PATIENT

DRUGS (6)
  1. NUCALA [Suspect]
     Active Substance: MEPOLIZUMAB
     Indication: Asthma
     Dosage: 100 MG (FIRST INJECTION ON 09/MAR/2022, SECOND INJECTION ON 06/APR/2022.)
     Route: 065
     Dates: start: 20220309, end: 20220406
  2. CALCIUM CARBONATE\CHOLECALCIFEROL [Concomitant]
     Active Substance: CALCIUM CARBONATE\CHOLECALCIFEROL
     Indication: Osteoporosis
     Dosage: 1 DF, QD (CONTINUED USE OF MEDICINAL PRODUCT)
     Route: 065
  3. SINGULAIR [Concomitant]
     Active Substance: MONTELUKAST SODIUM
     Indication: Asthma
     Dosage: UNK UNK, QD (CONTINUED USE OF MEDICINAL PRODUCT)
     Route: 065
  4. AERIUS (DESLORATADINE) [Concomitant]
     Active Substance: DESLORATADINE
     Indication: Hypersensitivity
     Dosage: 5 MG, QD (CONTINUED USE OF MEDICINAL PRODUCT)
     Route: 065
  5. SPIRIVA RESPIMAT [Concomitant]
     Active Substance: TIOTROPIUM BROMIDE
     Indication: Asthma
     Dosage: 5 ?G, QD (CONTINUED USE OF MEDICINAL PRODUCT)
     Route: 065
  6. INUXAIR [Concomitant]
     Indication: Asthma
     Dosage: 2 DF, BID (CONTINUED USE OF MEDICINAL PRODUCT)
     Route: 065

REACTIONS (4)
  - Hyperthyroidism [Recovering/Resolving]
  - Fatigue [Recovering/Resolving]
  - Arthralgia [Recovering/Resolving]
  - Myalgia [Recovering/Resolving]

NARRATIVE: CASE EVENT DATE: 20220309
